FAERS Safety Report 9837004 (Version 1)
Quarter: 2014Q1

REPORT INFORMATION
  Report Type: Spontaneous
  Country: US (occurrence: US)
  Receive Date: 20140123
  Receipt Date: 20140123
  Transmission Date: 20141002
  Serious: No
  Sender: FDA-Public Use
  Company Number: US-PFIZER INC-2014020348

PATIENT
  Sex: 0

DRUGS (1)
  1. QUILLIVANT XR [Suspect]
     Dosage: 750MG/5ML A DAY

REACTIONS (1)
  - Drug effect decreased [Unknown]
